FAERS Safety Report 18071142 (Version 1)
Quarter: 2020Q3

REPORT INFORMATION
  Report Type: Spontaneous
  Country: US (occurrence: US)
  Receive Date: 20200724
  Receipt Date: 20200724
  Transmission Date: 20201103
  Serious: Yes (Death)
  Sender: FDA-Public Use
  Company Number: None

PATIENT
  Age: 32 Year
  Sex: Female
  Weight: 67.5 kg

DRUGS (2)
  1. BLUEMEN CLEAR ADVANCED HAND SANITIZER [Suspect]
     Active Substance: ALCOHOL
     Indication: ALCOHOL USE DISORDER
     Route: 061
     Dates: start: 20200528, end: 20200528
  2. FLUOXETINE [Concomitant]
     Active Substance: FLUOXETINE HYDROCHLORIDE

REACTIONS (4)
  - Metabolic acidosis [None]
  - Respiratory distress [None]
  - Toxicity to various agents [None]
  - Blood methanol increased [None]

NARRATIVE: CASE EVENT DATE: 20200530
